FAERS Safety Report 19755314 (Version 1)
Quarter: 2021Q3

REPORT INFORMATION
  Report Type: Spontaneous
  Country: US (occurrence: US)
  Receive Date: 20210827
  Receipt Date: 20210827
  Transmission Date: 20211014
  Serious: No
  Sender: FDA-Public Use
  Company Number: US-RECKITT BENCKISER HEALTHCARE INT LIMITED-RB-97537-2020

PATIENT
  Age: 78 Year
  Sex: Female

DRUGS (1)
  1. MUCINEX DM [Suspect]
     Active Substance: DEXTROMETHORPHAN HYDROBROMIDE\GUAIFENESIN
     Indication: RHINORRHOEA
     Dosage: UNK (AMOUNT USED: 40 TABLETS).
     Route: 065

REACTIONS (2)
  - Drug ineffective [Recovered/Resolved]
  - Incorrect product administration duration [Unknown]
